FAERS Safety Report 7563555-4 (Version None)
Quarter: 2011Q2

REPORT INFORMATION
  Report Type: 
  Country: None (occurrence: None)
  Receive Date: 20110615
  Receipt Date: 20110603
  Transmission Date: 20111010
  Serious: Yes (Death, Other)
  Sender: FDA-Public Use
  Company Number: 1000021566

PATIENT
  Age: 74 Year
  Sex: Male
  Weight: 88 kg

DRUGS (11)
  1. DUTASTERIDE (DUTASTERIDE) (DUTASTERIDE) [Concomitant]
  2. FUROSEMIDE [Concomitant]
  3. SYMBICORT (BUDESONIDE, FORMOTEROL FUMARATE) (BUDESONIDE, FORMOTEROL FU [Concomitant]
  4. DIGOXIN [Concomitant]
  5. ROFLUMILAST (ROFLUMILAST) (TABLETS) [Suspect]
     Indication: CHRONIC OBSTRUCTIVE PULMONARY DISEASE
     Dosage: 500 MCG (500 MCG, 1 IN 1 D), ORAL
     Route: 048
     Dates: start: 20110414
  6. RAMIPRIL [Concomitant]
  7. METFORMIN HCL [Concomitant]
  8. SINTROM (ACENOCOUMAROL) (ACENOCOUMAROL) [Concomitant]
  9. ESPIRONOLACTONA (SPIRONOLACTONE) (SPIRONOLACTONE) [Concomitant]
  10. SPIRIVA (TIOTROPIUM BROMIDE) (TIOTROPIUM BROMIDE) [Concomitant]
  11. CARVEDILOL [Concomitant]

REACTIONS (2)
  - WEIGHT DECREASED [None]
  - CARDIAC ARREST [None]
